FAERS Safety Report 9904809 (Version 1)
Quarter: 2014Q1

REPORT INFORMATION
  Report Type: Spontaneous
  Country: US (occurrence: US)
  Receive Date: 20140218
  Receipt Date: 20140218
  Transmission Date: 20141002
  Serious: Yes (Other)
  Sender: FDA-Public Use
  Company Number: US-ASTRAZENECA-2014SE09578

PATIENT
  Age: 54 Year
  Sex: Male
  Weight: 63.5 kg

DRUGS (5)
  1. NEXIUM [Suspect]
     Indication: GASTROOESOPHAGEAL REFLUX DISEASE
     Route: 048
     Dates: start: 2012, end: 201401
  2. LISINOPRIL [Suspect]
     Indication: HYPERTENSION
     Dosage: DAILY
     Route: 048
     Dates: start: 201206
  3. GABAPENTIN [Concomitant]
     Indication: PAIN
     Dosage: UNKNOWN TID
     Route: 048
     Dates: start: 201206
  4. HYDROCODONE [Concomitant]
     Dosage: UNKNOWN DAILY
     Route: 048
     Dates: start: 201206
  5. UNKNOWN [Concomitant]
     Indication: CARDIAC DISORDER
     Dosage: UNKNOWN UNK

REACTIONS (5)
  - Cerebrovascular accident [Unknown]
  - Eating disorder [Unknown]
  - Dyspepsia [Unknown]
  - Drug dose omission [Unknown]
  - Drug ineffective [Unknown]
